FAERS Safety Report 21950584 (Version 1)
Quarter: 2023Q1

REPORT INFORMATION
  Report Type: Report from Study
  Country: US (occurrence: US)
  Receive Date: 20230203
  Receipt Date: 20230203
  Transmission Date: 20230418
  Serious: Yes (Other)
  Sender: FDA-Public Use
  Company Number: US-JNJFOC-20230162220

PATIENT
  Sex: Male

DRUGS (1)
  1. SIMPONI [Suspect]
     Active Substance: GOLIMUMAB
     Indication: Psoriatic arthropathy
     Route: 058
     Dates: start: 202301

REACTIONS (6)
  - Psoriatic arthropathy [Unknown]
  - Off label use [Unknown]
  - Gastrointestinal disorder [Unknown]
  - Mouth ulceration [Unknown]
  - Blood blister [Unknown]
  - Eczema [Unknown]
